FAERS Safety Report 6700893-9 (Version None)
Quarter: 2010Q2

REPORT INFORMATION
  Report Type: 
  Country: None (occurrence: None)
  Receive Date: 20100428
  Receipt Date: 20100419
  Transmission Date: 20101027
  Serious: Yes (Other)
  Sender: FDA-Public Use
  Company Number: US-PFIZER INC-2010048952

PATIENT
  Age: 52 Year
  Sex: Male

DRUGS (4)
  1. ATORVASTATIN CALCIUM [Suspect]
     Dosage: 20 MG, UNK
     Dates: start: 20080101
  2. TAMOXIFEN CITRATE [Concomitant]
  3. LAMOTRIGINE [Concomitant]
     Dosage: 700 MG, UNK
  4. TOPIRAMATE [Concomitant]
     Dosage: 400 MG, DAILY

REACTIONS (1)
  - ATAXIA [None]
